FAERS Safety Report 25483496 (Version 2)
Quarter: 2025Q3

REPORT INFORMATION
  Report Type: Spontaneous
  Country: US (occurrence: US)
  Receive Date: 20250626
  Receipt Date: 20250805
  Transmission Date: 20251020
  Serious: Yes (Hospitalization, Other)
  Sender: RECKITT BENCKISER
  Company Number: US-INDIVIOR US-INDV-164872-2025

PATIENT

DRUGS (3)
  1. SUBOXONE [Suspect]
     Active Substance: BUPRENORPHINE HYDROCHLORIDE\NALOXONE HYDROCHLORIDE
     Indication: Product used for unknown indication
     Route: 065
  2. SUBOXONE [Suspect]
     Active Substance: BUPRENORPHINE HYDROCHLORIDE\NALOXONE HYDROCHLORIDE
     Route: 042
  3. METHAMPHETAMINE [Suspect]
     Active Substance: METHAMPHETAMINE
     Indication: Product used for unknown indication
     Route: 065

REACTIONS (8)
  - Suicidal ideation [Unknown]
  - Drug dependence [Recovered/Resolved]
  - Hepatitis C [Recovered/Resolved]
  - Euphoric mood [Recovered/Resolved]
  - Substance abuse [Recovered/Resolved]
  - Intentional product use issue [Recovered/Resolved]
  - Drug withdrawal syndrome [Unknown]
  - Impaired driving ability [Recovered/Resolved]
